FAERS Safety Report 7686542-4 (Version None)
Quarter: 2011Q3

REPORT INFORMATION
  Report Type: 
  Country: None (occurrence: None)
  Receive Date: 20110816
  Receipt Date: 20110808
  Transmission Date: 20111222
  Serious: Yes (Other)
  Sender: FDA-Public Use
  Company Number: CA-MEDIMMUNE-MEDI-0013340

PATIENT
  Sex: Female

DRUGS (2)
  1. BLOOD CELLS, PACKED HUMAN [Concomitant]
  2. SYNAGIS [Suspect]
     Route: 030

REACTIONS (2)
  - THROMBOCYTOPENIA [None]
  - EOSINOPHILIA [None]
